FAERS Safety Report 13831147 (Version 1)
Quarter: 2017Q3

REPORT INFORMATION
  Report Type: Spontaneous
  Country: CN (occurrence: CN)
  Receive Date: 20170803
  Receipt Date: 20170803
  Transmission Date: 20171127
  Serious: Yes (Other)
  Sender: FDA-Public Use
  Company Number: CN-MYLANLABS-2017M1047689

PATIENT

DRUGS (9)
  1. ETOPOSIDE. [Suspect]
     Active Substance: ETOPOSIDE
     Indication: GESTATIONAL TROPHOBLASTIC TUMOUR
     Dosage: 100 MG/M2 DAILY ON DAYS 1 TO 5 AS A PART OF FAEV REGIMEN
     Route: 050
  2. VINCRISTINE [Suspect]
     Active Substance: VINCRISTINE
     Indication: GESTATIONAL TROPHOBLASTIC TUMOUR
     Dosage: 2MG; ADMINISTERED 3 HOURS PRIOR TO DACTINOMYCIN ON DAY 1; FAEV REGIMEN
     Route: 040
  3. CYCLOPHOSPHAMIDE. [Suspect]
     Active Substance: CYCLOPHOSPHAMIDE
     Indication: GESTATIONAL TROPHOBLASTIC TUMOUR
     Dosage: RECEIVED AS A PART OF EMA/CO REGIMEN
     Route: 065
  4. METHOTREXATE. [Suspect]
     Active Substance: METHOTREXATE
     Indication: GESTATIONAL TROPHOBLASTIC TUMOUR
     Dosage: AS A PART OF EMA/CO REGIMEN
     Route: 065
  5. DACTINOMYCIN [Suspect]
     Active Substance: DACTINOMYCIN
     Indication: GESTATIONAL TROPHOBLASTIC TUMOUR
     Dosage: 200 MICROG/M2 DAILY ON DAYS 1 TO 5 AS A PART OF FAEV REGIMEN
     Route: 050
  6. DACTINOMYCIN [Suspect]
     Active Substance: DACTINOMYCIN
     Dosage: RECEIVED AS A PART OF EMA/CO REGIMEN
     Route: 065
  7. FLOXURIDINE. [Suspect]
     Active Substance: FLOXURIDINE
     Indication: GESTATIONAL TROPHOBLASTIC TUMOUR
     Dosage: 800 MG/M2 DAILY ON DAYS 1 TO 5 AS A PART OF FAEV REGIMEN
     Route: 050
  8. ETOPOSIDE. [Suspect]
     Active Substance: ETOPOSIDE
     Dosage: EMA/CO REGIMEN
     Route: 065
  9. VINCRISTINE [Suspect]
     Active Substance: VINCRISTINE
     Dosage: RECEIVED AS A PART OF EMA/CO REGIMEN
     Route: 065

REACTIONS (2)
  - Maternal exposure during pregnancy [Unknown]
  - Acute myeloid leukaemia [Unknown]
